FAERS Safety Report 6636552-0 (Version None)
Quarter: 2010Q1

REPORT INFORMATION
  Report Type: 
  Country: None (occurrence: None)
  Receive Date: 20100226
  Receipt Date: 20100118
  Transmission Date: 20100710
  Serious: Yes (Hospitalization)
  Sender: FDA-Public Use
  Company Number: 221090USA

PATIENT
  Age: 42 Year
  Sex: Male
  Weight: 122 kg

DRUGS (3)
  1. OXALIPLATIN [Suspect]
     Indication: COLON CANCER
     Dosage: 21.0714 MG (295 MG, 1 IN 2 WK), INTRAVENOUS; SEE IMAGE
     Route: 042
     Dates: start: 20090408, end: 20090408
  2. OXALIPLATIN [Suspect]
     Indication: COLON CANCER
     Dosage: 21.0714 MG (295 MG, 1 IN 2 WK), INTRAVENOUS; SEE IMAGE
     Route: 042
     Dates: start: 20090427, end: 20090427
  3. OXALIPLATIN [Suspect]
     Indication: COLON CANCER
     Dosage: 21.0714 MG (295 MG, 1 IN 2 WK), INTRAVENOUS; SEE IMAGE
     Route: 042
     Dates: start: 20090518, end: 20090518

REACTIONS (4)
  - CHILLS [None]
  - HEART RATE INCREASED [None]
  - PYREXIA [None]
  - TREMOR [None]
